FAERS Safety Report 21493915 (Version 1)
Quarter: 2022Q4

REPORT INFORMATION
  Report Type: Spontaneous
  Country: GB (occurrence: GB)
  Receive Date: 20221021
  Receipt Date: 20221021
  Transmission Date: 20230113
  Serious: Yes (Other)
  Sender: FDA-Public Use
  Company Number: GB-MHRA-MED-202210181601288540-ZYGJC

PATIENT
  Age: 63 Year
  Sex: Female
  Weight: 45 kg

DRUGS (1)
  1. ENTYVIO [Suspect]
     Active Substance: VEDOLIZUMAB
     Indication: Crohn^s disease
     Dosage: 108 MILLIGRAM
     Route: 058

REACTIONS (1)
  - Injection site erythema [Recovering/Resolving]

NARRATIVE: CASE EVENT DATE: 20220615
